FAERS Safety Report 7960577-6 (Version None)
Quarter: 2011Q4

REPORT INFORMATION
  Report Type: 
  Country: None (occurrence: None)
  Receive Date: 20111206
  Receipt Date: 20111129
  Transmission Date: 20120403
  Serious: No
  Sender: FDA-Public Use
  Company Number: US-B.I. PHARMACEUTICALS,INC./RIDGEFIELD-2011-BP-27041BP

PATIENT
  Age: 79 Year
  Sex: Female

DRUGS (4)
  1. COREG [Concomitant]
  2. LISINOPRIL [Concomitant]
  3. AMIODARONE HCL [Concomitant]
  4. PRADAXA [Suspect]
     Dosage: 150 MG
     Route: 048
     Dates: start: 20111101, end: 20111101

REACTIONS (1)
  - LEUKOPENIA [None]
